FAERS Safety Report 23317060 (Version 1)
Quarter: 2023Q4

REPORT INFORMATION
  Report Type: Spontaneous
  Country: US (occurrence: None)
  Receive Date: 20231219
  Receipt Date: 20231219
  Transmission Date: 20240110
  Serious: No
  Sender: FDA-Public Use
  Company Number: US-ROCHE-3352349

PATIENT
  Age: 10 Year
  Sex: Male

DRUGS (3)
  1. HEMLIBRA [Suspect]
     Active Substance: EMICIZUMAB-KXWH
     Indication: Factor VIII deficiency
     Dosage: STRENGTH-105 MG/ 0.7 ML
     Route: 058
     Dates: start: 202201
  2. HEMLIBRA [Suspect]
     Active Substance: EMICIZUMAB-KXWH
     Route: 058
     Dates: start: 202211
  3. ADVATE [Concomitant]
     Active Substance: ANTIHEMOPHILIC FACTOR, HUMAN RECOMBINANT

REACTIONS (4)
  - Tooth loss [Unknown]
  - Mouth haemorrhage [Recovered/Resolved]
  - Loose tooth [Unknown]
  - Mucosal haemorrhage [Unknown]

NARRATIVE: CASE EVENT DATE: 20230823
